FAERS Safety Report 9332001 (Version 3)
Quarter: 2013Q3

REPORT INFORMATION
  Report Type: Report from Study
  Country: US (occurrence: US)
  Receive Date: 20130605
  Receipt Date: 20130705
  Transmission Date: 20140515
  Serious: Yes (Other)
  Sender: FDA-Public Use
  Company Number: US-US-EMD SERONO, INC.-7214869

PATIENT
  Age: 22 Year
  Sex: Female

DRUGS (2)
  1. REBIF [Suspect]
     Indication: PRODUCT USED FOR UNKNOWN INDICATION
     Route: 058
     Dates: start: 20130424
  2. REBIF [Suspect]
     Route: 058
     Dates: start: 201305, end: 20130522

REACTIONS (4)
  - Abortion spontaneous [Recovered/Resolved]
  - Hepatic enzyme increased [Unknown]
  - Injection site bruising [Unknown]
  - Maternal exposure timing unspecified [Recovered/Resolved]
